FAERS Safety Report 5363212-9 (Version None)
Quarter: 2007Q2

REPORT INFORMATION
  Report Type: 
  Country: None (occurrence: None)
  Receive Date: 20070620
  Receipt Date: 20070615
  Transmission Date: 20071010
  Serious: Yes (Other)
  Sender: FDA-Public Use
  Company Number: PHNU2007DE01237

PATIENT
  Age: 64 Year
  Sex: Male

DRUGS (3)
  1. BELOC-ZOK [Suspect]
  2. CO-DIOVAN [Suspect]
     Indication: HYPERTENSION
     Dosage: 1 DF, QD
     Route: 048
  3. METOPROLOL SUCCINATE [Suspect]
     Dosage: 50MG

REACTIONS (1)
  - BRADYARRHYTHMIA [None]
